FAERS Safety Report 4743314-8 (Version None)
Quarter: 2005Q3

REPORT INFORMATION
  Report Type: 
  Country: None (occurrence: None)
  Receive Date: 20050811
  Receipt Date: 20050801
  Transmission Date: 20060218
  Serious: Yes (Death)
  Sender: FDA-Public Use
  Company Number: 163-20785-05080028

PATIENT
  Age: 16 Year
  Sex: Male

DRUGS (4)
  1. THALOMID [Suspect]
     Indication: APHTHOUS STOMATITIS
     Dosage: 50 MG, QD, ORAL
     Route: 048
     Dates: start: 20050614, end: 20050727
  2. STEROIDS (CORTICOSTEROIDS) [Concomitant]
  3. ANTIRETROVIRALS (ANTIVIRALS FOR SYSTEMIC USE) [Concomitant]
  4. ANTIMICROBIALS  (ANTIINFECTIVES) [Concomitant]

REACTIONS (4)
  - CATHETER RELATED INFECTION [None]
  - CEREBROVASCULAR ACCIDENT [None]
  - RECTAL HAEMORRHAGE [None]
  - RESPIRATORY FAILURE [None]
